FAERS Safety Report 12641089 (Version 4)
Quarter: 2016Q4

REPORT INFORMATION
  Report Type: Spontaneous
  Country: US (occurrence: US)
  Receive Date: 20160810
  Receipt Date: 20161022
  Transmission Date: 20170207
  Serious: No
  Sender: FDA-Public Use
  Company Number: PHEH2016US020001

PATIENT
  Sex: Female

DRUGS (3)
  1. GLUTEN [Suspect]
     Active Substance: WHEAT GLUTEN
     Indication: PRODUCT USED FOR UNKNOWN INDICATION
     Route: 065
  2. FAMVIR [Suspect]
     Active Substance: FAMCICLOVIR
     Indication: RASH
     Dosage: 250 MG, UNK
     Route: 065
  3. FAMVIR [Suspect]
     Active Substance: FAMCICLOVIR
     Indication: HERPES ZOSTER
     Dosage: 500 MG, QD
     Route: 065

REACTIONS (17)
  - Urine output increased [Unknown]
  - Confusional state [Unknown]
  - Migraine [Unknown]
  - Mental disorder [Unknown]
  - Myalgia [Unknown]
  - Arthralgia [Unknown]
  - Somnolence [Unknown]
  - Drug intolerance [Unknown]
  - Malaise [Unknown]
  - Fatigue [Unknown]
  - Headache [Unknown]
  - Cardiac disorder [Unknown]
  - Depression [Unknown]
  - Feeling abnormal [Unknown]
  - Hypersensitivity [Unknown]
  - Vomiting [Unknown]
  - Rash [Unknown]
